FAERS Safety Report 7063182-1 (Version None)
Quarter: 2010Q4

REPORT INFORMATION
  Report Type: 
  Country: None (occurrence: None)
  Receive Date: 20101026
  Receipt Date: 20100511
  Transmission Date: 20110411
  Serious: No
  Sender: FDA-Public Use
  Company Number: US-PFIZER INC-2010060009

PATIENT
  Sex: Female
  Weight: 59 kg

DRUGS (10)
  1. LIPITOR [Suspect]
     Indication: HYPERCHOLESTEROLAEMIA
     Dosage: 10 MG, DAILY
     Route: 048
     Dates: start: 20080101, end: 20100101
  2. CELEBREX [Concomitant]
     Dosage: UNK
  3. PREMARIN [Concomitant]
     Dosage: UNK
  4. PROTONIX [Concomitant]
     Dosage: UNK
  5. SINGULAIR ^DIECKMANN^ [Concomitant]
     Dosage: UNK
  6. VITAMINS [Concomitant]
     Dosage: UNK
  7. FISH OIL [Concomitant]
     Dosage: UNK
  8. ACETYLSALICYLIC ACID [Concomitant]
     Dosage: UNK
  9. ACETAMINOPHEN [Concomitant]
     Dosage: UNK
  10. DIOVAN HCT [Concomitant]
     Indication: BLOOD PRESSURE INCREASED
     Dosage: UNK

REACTIONS (3)
  - BLOOD CHOLESTEROL INCREASED [None]
  - NAIL DISORDER [None]
  - NAIL GROWTH ABNORMAL [None]
